FAERS Safety Report 5271782-4 (Version None)
Quarter: 2007Q1

REPORT INFORMATION
  Report Type: 
  Country: None (occurrence: None)
  Receive Date: 20061214
  Receipt Date: 20060113
  Transmission Date: 20070707
  Serious: Yes (Hospitalization)
  Sender: FDA-Public Use
  Company Number: 2006008075

PATIENT
  Sex: Female
  Weight: 67.1324 kg

DRUGS (5)
  1. BEXTRA [Suspect]
     Indication: OSTEOARTHRITIS
     Dosage: 15 MG (10 MG, 1 IN 1 D), ORAL
     Route: 048
     Dates: start: 20040901, end: 20050401
  2. CELEBREX [Suspect]
     Indication: PAIN
     Dosage: 400 MG (200 MG, AS NECESSARY), ORAL
     Route: 048
  3. IBUPROFEN [Suspect]
     Indication: OSTEOARTHRITIS
     Dosage: ORAL
     Route: 048
  4. TYLENOL [Suspect]
     Indication: OSTEOARTHRITIS
     Dates: start: 20050401
  5. ANTIDEPRESSANTS (ANTIDEPRESSANTS) [Concomitant]

REACTIONS (2)
  - ABDOMINAL PAIN UPPER [None]
  - VOMITING [None]
